FAERS Safety Report 19520952 (Version 2)
Quarter: 2021Q3

REPORT INFORMATION
  Report Type: Report from Study
  Country: BE (occurrence: BE)
  Receive Date: 20210712
  Receipt Date: 20210826
  Transmission Date: 20211014
  Serious: Yes (Other)
  Sender: FDA-Public Use
  Company Number: NVSC2021BE153224

PATIENT
  Sex: Male

DRUGS (1)
  1. GILENYA [Suspect]
     Active Substance: FINGOLIMOD HYDROCHLORIDE
     Indication: RELAPSING-REMITTING MULTIPLE SCLEROSIS
     Dosage: 1 DF, QD
     Route: 065
     Dates: start: 201709

REACTIONS (3)
  - Oesophageal carcinoma [Unknown]
  - Oesophageal stenosis [Unknown]
  - Radiation myelopathy [Unknown]

NARRATIVE: CASE EVENT DATE: 20201215
